FAERS Safety Report 5167318-9 (Version None)
Quarter: 2006Q4

REPORT INFORMATION
  Report Type: 
  Country: None (occurrence: None)
  Receive Date: 20061130
  Receipt Date: 20061114
  Transmission Date: 20070319
  Serious: Yes (Hospitalization)
  Sender: FDA-Public Use
  Company Number: 009166

PATIENT
  Age: 33 Year
  Sex: Female

DRUGS (2)
  1. NORETHINDRONE ACETATE [Suspect]
     Dosage: 1 TABLET, QD, ORAL
     Route: 048
     Dates: start: 20061024, end: 20061026
  2. LUPRON [Suspect]
     Indication: ENDOMETRIOSIS
     Dosage: 11.25 MG, 1/EVERY 3 MONTHS, INTRAMUSCULAR
     Route: 030
     Dates: start: 20061024

REACTIONS (6)
  - FATIGUE [None]
  - MUSCULAR WEAKNESS [None]
  - PAIN IN EXTREMITY [None]
  - PARAESTHESIA [None]
  - SENSATION OF HEAVINESS [None]
  - SINUSITIS [None]
